FAERS Safety Report 20076435 (Version 2)
Quarter: 2022Q1

REPORT INFORMATION
  Report Type: Report from Study
  Country: TR (occurrence: TR)
  Receive Date: 20211116
  Receipt Date: 20220307
  Transmission Date: 20220424
  Serious: Yes (Hospitalization)
  Sender: FDA-Public Use
  Company Number: TR-PFIZER INC-202101563208

PATIENT
  Age: 80 Year
  Sex: Male
  Weight: 58.5 kg

DRUGS (3)
  1. CARBOPLATIN [Suspect]
     Active Substance: CARBOPLATIN
     Indication: Non-small cell lung cancer
     Dosage: MILLIGRAM/SQ. METER, AUC 5 Q3W (EVERY 3 WEEKS)
     Route: 042
     Dates: start: 20211007
  2. PEMETREXED [Suspect]
     Active Substance: PEMETREXED
     Indication: Non-small cell lung cancer
     Dosage: 500 MG/M2, EVERY 3 WEEKS (Q3W)
     Route: 042
     Dates: start: 20211007
  3. INVESTIGATIONAL PRODUCT [Suspect]
     Active Substance: INVESTIGATIONAL PRODUCT
     Indication: Non-small cell lung cancer
     Dosage: EVERY 3 WEEKS
     Route: 042
     Dates: start: 20211007

REACTIONS (1)
  - Seizure [Recovered/Resolved]

NARRATIVE: CASE EVENT DATE: 20211023
